FAERS Safety Report 11217402 (Version 1)
Quarter: 2015Q2

REPORT INFORMATION
  Report Type: Report from Study
  Country: US (occurrence: US)
  Receive Date: 20150625
  Receipt Date: 20150625
  Transmission Date: 20150821
  Serious: No
  Sender: FDA-Public Use
  Company Number: US-AMGEN-USASL2015060613

PATIENT
  Age: 60 Year
  Sex: Female

DRUGS (3)
  1. ENBREL [Suspect]
     Active Substance: ETANERCEPT
     Indication: RHEUMATOID ARTHRITIS
     Dosage: 50 MG, QWK
     Route: 065
  2. METHOTREXATE [Suspect]
     Active Substance: METHOTREXATE
     Indication: PRODUCT USED FOR UNKNOWN INDICATION
     Dosage: UNK
     Route: 048
  3. ENBREL [Suspect]
     Active Substance: ETANERCEPT
     Indication: ANKYLOSING SPONDYLITIS

REACTIONS (7)
  - Cyst [Recovered/Resolved]
  - Trigger finger [Recovered/Resolved]
  - Alopecia [Recovered/Resolved]
  - Nerve compression [Recovered/Resolved]
  - Lower extremity mass [Recovered/Resolved]
  - Dry skin [Recovered/Resolved]
  - Upper extremity mass [Recovered/Resolved]

NARRATIVE: CASE EVENT DATE: 2013
